FAERS Safety Report 14856052 (Version 1)
Quarter: 2018Q2

REPORT INFORMATION
  Report Type: Spontaneous
  Country: RO (occurrence: RO)
  Receive Date: 20180507
  Receipt Date: 20180507
  Transmission Date: 20180711
  Serious: Yes (Death)
  Sender: FDA-Public Use
  Company Number: RO-ANIPHARMA-2018-RO-000003

PATIENT
  Age: 68 Year
  Sex: Male

DRUGS (6)
  1. BETALOC [Concomitant]
     Active Substance: METOPROLOL TARTRATE
  2. DIUREX [Concomitant]
     Active Substance: AMILORIDE HYDROCHLORIDE\HYDROCHLOROTHIAZIDE
  3. BRILIQUE [Suspect]
     Active Substance: TICAGRELOR
     Dosage: 90 MG BID
     Route: 048
  4. OLICARD [Concomitant]
     Active Substance: ISOSORBIDE MONONITRATE
  5. CRESTOR [Suspect]
     Active Substance: ROSUVASTATIN CALCIUM
     Dosage: 40 MG UNK
     Route: 048
  6. ATACAND [Suspect]
     Active Substance: CANDESARTAN CILEXETIL
     Dosage: 16 MG UNK
     Route: 048

REACTIONS (1)
  - Death [Fatal]
